FAERS Safety Report 5701366-2 (Version None)
Quarter: 2008Q2

REPORT INFORMATION
  Report Type: 
  Country: None (occurrence: None)
  Receive Date: 20080407
  Receipt Date: 20080327
  Transmission Date: 20081010
  Serious: Yes (Hospitalization, Other)
  Sender: FDA-Public Use
  Company Number: 062-21880-08031104

PATIENT
  Age: 68 Year
  Sex: Male
  Weight: 61 kg

DRUGS (1)
  1. REVLIMID [Suspect]
     Indication: PLASMACYTOMA
     Dosage: 25 MG, 1 X 7, ORAL
     Route: 048
     Dates: start: 20071201, end: 20080301

REACTIONS (4)
  - CARCINOID TUMOUR PULMONARY [None]
  - CONVULSION [None]
  - LUNG NEOPLASM [None]
  - METASTASES TO CENTRAL NERVOUS SYSTEM [None]
